FAERS Safety Report 7148290-9 (Version None)
Quarter: 2010Q4

REPORT INFORMATION
  Report Type: 
  Country: None (occurrence: None)
  Receive Date: 20101124
  Receipt Date: 20101104
  Transmission Date: 20110411
  Serious: Yes (Life-Threatening, Hospitalization, Other)
  Sender: FDA-Public Use
  Company Number: 1000016837

PATIENT
  Age: 26 Year
  Sex: Female

DRUGS (6)
  1. ESCITALOPRAM OXALATE [Suspect]
     Dosage: SINGLE DOSAGE,ORAL
     Route: 048
     Dates: start: 20101007, end: 20101007
  2. BROMAZEPAM (BROMAZEPAM) (6 MILLIGRAM, TABLETS) [Suspect]
     Dosage: (180 MG,ONCE),ORAL
     Route: 048
     Dates: start: 20101007, end: 20101007
  3. IBUPROFEN [Suspect]
     Dosage: 8000-12000 MG (ONCE),ORAL
     Route: 048
     Dates: start: 20101007, end: 20101007
  4. CLARITHROMYCIN [Suspect]
     Dosage: (3000 MG,ONCE),ORAL
     Route: 048
     Dates: start: 20101007, end: 20101007
  5. PARACETAMOL (PARACETAMOL) (500 MILLIGRAM, TABLETS) [Suspect]
     Dosage: (8000 MG,ONCE),ORAL
     Route: 048
     Dates: start: 20101007, end: 20101007
  6. ALCOHOL (ETHANOL) [Suspect]
     Dosage: UNKNOWN SINGLE AMOUNT (1.4 PER MILLE),ORAL
     Route: 048
     Dates: start: 20101007, end: 20101007

REACTIONS (5)
  - ACIDOSIS [None]
  - LOSS OF CONSCIOUSNESS [None]
  - MULTIPLE DRUG OVERDOSE INTENTIONAL [None]
  - RESPIRATORY DEPRESSION [None]
  - SUICIDE ATTEMPT [None]
